FAERS Safety Report 5955083-4 (Version None)
Quarter: 2008Q4

REPORT INFORMATION
  Report Type: 
  Country: None (occurrence: None)
  Receive Date: 20081117
  Receipt Date: 20081015
  Transmission Date: 20090506
  Serious: Yes (Other)
  Sender: FDA-Public Use
  Company Number: B0546252A

PATIENT
  Age: 71 Year
  Sex: Male
  Weight: 67 kg

DRUGS (9)
  1. ARIXTRA [Suspect]
     Indication: DRUG USE FOR UNKNOWN INDICATION
     Dosage: 2.5MG PER DAY
     Route: 058
     Dates: start: 20080514, end: 20080523
  2. CORTANCYL [Suspect]
     Indication: DRUG USE FOR UNKNOWN INDICATION
     Dosage: 60MG PER DAY
     Route: 048
     Dates: start: 20080515, end: 20080524
  3. CORTANCYL [Suspect]
     Dosage: 30MG PER DAY
     Route: 048
     Dates: start: 20080522
  4. COVERSYL [Concomitant]
     Dosage: 4MG PER DAY
     Route: 065
  5. PLAVIX [Concomitant]
     Route: 065
  6. INIPOMP [Concomitant]
     Dosage: 40MG PER DAY
     Route: 065
  7. KARDEGIC [Concomitant]
     Dosage: 75MG PER DAY
     Route: 065
  8. ISOPTIN [Concomitant]
     Dosage: 240MG PER DAY
     Route: 065
  9. JOSIR [Concomitant]
     Dosage: .4MG PER DAY
     Route: 065

REACTIONS (1)
  - POST PROCEDURAL HAEMORRHAGE [None]
